FAERS Safety Report 9649109 (Version 1)
Quarter: 2013Q4

REPORT INFORMATION
  Report Type: Spontaneous
  Country: US (occurrence: US)
  Receive Date: 20131028
  Receipt Date: 20131028
  Transmission Date: 20140711
  Serious: No
  Sender: FDA-Public Use
  Company Number: US-SA-2013SA094473

PATIENT
  Age: 36 Year
  Sex: Male

DRUGS (12)
  1. LUMIZYME [Suspect]
     Indication: GLYCOGEN STORAGE DISEASE TYPE II
     Route: 042
     Dates: start: 201302
  2. DILTIAZEM [Concomitant]
     Dosage: DOSE:30 UNIT(S)
  3. DOCUSATE [Concomitant]
  4. DULOXETINE HYDROCHLORIDE [Concomitant]
  5. FENTANYL [Concomitant]
  6. FERROUS SULFATE [Concomitant]
  7. DUONEB [Concomitant]
  8. ATIVAN [Concomitant]
  9. AMITIZA [Concomitant]
  10. MIRTAZAPINE [Concomitant]
  11. PERCOCET [Concomitant]
  12. MIRALAX [Concomitant]

REACTIONS (1)
  - Dyspnoea [Recovered/Resolved]
